FAERS Safety Report 19855132 (Version 1)
Quarter: 2021Q3

REPORT INFORMATION
  Report Type: Spontaneous
  Country: US (occurrence: US)
  Receive Date: 20210920
  Receipt Date: 20210920
  Transmission Date: 20211014
  Serious: No
  Sender: FDA-Public Use
  Company Number: US-BAYER-2021-213630

PATIENT
  Age: 82 Year
  Sex: Male

DRUGS (1)
  1. MIRALAX [Suspect]
     Active Substance: POLYETHYLENE GLYCOL 3350
     Dosage: IN THE MORNING 1 TABLESPOON OF MIRALAX WITH MILK AND COFFEE, QD
     Route: 048

REACTIONS (2)
  - Incorrect dose administered [None]
  - Incorrect product administration duration [Unknown]
